FAERS Safety Report 7182727-4 (Version None)
Quarter: 2010Q4

REPORT INFORMATION
  Report Type: 
  Country: None (occurrence: None)
  Receive Date: 20101221
  Receipt Date: 20100525
  Transmission Date: 20110411
  Serious: No
  Sender: FDA-Public Use
  Company Number: US-AMGEN-TCS411722

PATIENT

DRUGS (5)
  1. ENBREL [Suspect]
     Indication: RHEUMATOID ARTHRITIS
     Dosage: 50 MG, QWK
     Route: 058
     Dates: start: 20100327
  2. ORAL CONTRACEPTIVE NOS [Concomitant]
     Dosage: UNK UNK, UNK
     Route: 048
  3. LEVONORGESTREL [Concomitant]
     Dosage: UNK UNK, UNK
  4. DICLOFENAC SODIUM [Concomitant]
     Dosage: 1 %, UNK
     Dates: start: 20100427
  5. PNEUMOCOCCAL VACCINE [Concomitant]
     Dosage: UNK UNK, UNK
     Dates: start: 20100405

REACTIONS (4)
  - INJECTION SITE ERYTHEMA [None]
  - INJECTION SITE INFLAMMATION [None]
  - INJECTION SITE PRURITUS [None]
  - MENSTRUAL DISORDER [None]
